FAERS Safety Report 9184056 (Version 1)
Quarter: 2012Q4

REPORT INFORMATION
  Report Type: 
  Country: PL (occurrence: PL)
  Receive Date: 20121031
  Receipt Date: 20121031
  Transmission Date: 20130627
  Serious: Yes (Hospitalization, Other)
  Sender: FDA-Public Use
  Company Number: PHHY2012PL097579

PATIENT
  Sex: Male

DRUGS (6)
  1. MYFORTIC [Suspect]
     Indication: RENAL TRANSPLANT
  2. MYFORTIC [Suspect]
     Dosage: 720 mg daily
     Dates: start: 200908, end: 201201
  3. PREDNISONE [Concomitant]
     Dates: end: 200908
  4. ADVAGRAF [Concomitant]
     Dosage: 3 mg/dl, UNK
  5. ADVAGRAF [Concomitant]
  6. OMEPRAZOLE [Concomitant]
     Dosage: 20 mg, UNK

REACTIONS (14)
  - Klebsiella infection [Unknown]
  - Pyuria [Unknown]
  - Urinary tract infection [Unknown]
  - Urinary tract obstruction [Unknown]
  - Hydronephrosis [Unknown]
  - Renal failure [Unknown]
  - Anaemia [Unknown]
  - Proteinuria [Recovered/Resolved]
  - Renal impairment [Unknown]
  - Blood creatinine increased [Unknown]
  - Inflammation [Unknown]
  - Cataract [Unknown]
  - Hydrocele [Unknown]
  - Lymphorrhoea [Unknown]
